FAERS Safety Report 17846832 (Version 1)
Quarter: 2020Q2

REPORT INFORMATION
  Report Type: Spontaneous
  Country: US (occurrence: US)
  Receive Date: 20200601
  Receipt Date: 20200601
  Transmission Date: 20200714
  Serious: Yes (Hospitalization)
  Sender: FDA-Public Use
  Company Number: US-MYLANLABS-2020M1052939

PATIENT
  Age: 46 Year
  Sex: Male

DRUGS (10)
  1. PIOGLITAZONE. [Concomitant]
     Active Substance: PIOGLITAZONE
     Indication: TYPE 2 DIABETES MELLITUS
     Route: 065
  2. SILDENAFIL. [Concomitant]
     Active Substance: SILDENAFIL
     Route: 065
  3. FENOFIBRATE. [Concomitant]
     Active Substance: FENOFIBRATE
     Route: 065
  4. KETAMINE [Suspect]
     Active Substance: KETAMINE
     Indication: CHEST PAIN
  5. HYDROCHLOROTHIAZIDE. [Concomitant]
     Active Substance: HYDROCHLOROTHIAZIDE
     Indication: HYPERTENSION
     Route: 065
  6. KETAMINE [Suspect]
     Active Substance: KETAMINE
     Indication: MUSCULOSKELETAL PAIN
     Dosage: 20 MILLIGRAMALTHOUGH THE KETAMINE INFUSION WAS INTENDED TO BE ADMINISTERED OVER THE COURSE..
     Route: 042
  7. LOSARTAN. [Concomitant]
     Active Substance: LOSARTAN
     Indication: HYPERTENSION
     Route: 065
  8. FLUTICASONE. [Concomitant]
     Active Substance: FLUTICASONE
     Route: 065
  9. SITAGLIPTIN [Concomitant]
     Active Substance: SITAGLIPTIN
     Indication: TYPE 2 DIABETES MELLITUS
     Route: 065
  10. ESOMEPRAZOLE. [Concomitant]
     Active Substance: ESOMEPRAZOLE MAGNESIUM
     Indication: GASTROOESOPHAGEAL REFLUX DISEASE
     Route: 065

REACTIONS (4)
  - Hypotension [Recovered/Resolved]
  - Incorrect product administration duration [Recovered/Resolved]
  - Nausea [Recovered/Resolved]
  - Bradycardia [Recovered/Resolved]
